FAERS Safety Report 11577812 (Version 4)
Quarter: 2016Q1

REPORT INFORMATION
  Report Type: Report from Study
  Country: FR (occurrence: FR)
  Receive Date: 20150930
  Receipt Date: 20160321
  Transmission Date: 20160525
  Serious: Yes (Hospitalization, Other)
  Sender: FDA-Public Use
  Company Number: FR-ASTELLAS-2015US034160

PATIENT
  Age: 18 Year
  Sex: Male

DRUGS (1)
  1. MICAFUNGIN [Suspect]
     Active Substance: MICAFUNGIN
     Indication: ANTIFUNGAL PROPHYLAXIS
     Dosage: 50 MG / DAY
     Route: 065
     Dates: start: 20140818, end: 20150102

REACTIONS (16)
  - Hydrocephalus [Recovering/Resolving]
  - Bone marrow failure [Recovered/Resolved]
  - Petechiae [Recovered/Resolved]
  - Device related infection [Recovering/Resolving]
  - Staphylococcal sepsis [Recovered/Resolved]
  - Lung infection [Recovered/Resolved]
  - Acute myeloid leukaemia recurrent [Unknown]
  - Meningitis cryptococcal [Recovering/Resolving]
  - Bacillus infection [Recovered/Resolved]
  - Mouth haemorrhage [Recovered/Resolved]
  - Allergic transfusion reaction [Recovered/Resolved]
  - Mucosal inflammation [Recovered/Resolved]
  - Drug ineffective [Recovering/Resolving]
  - Meningitis bacterial [Recovering/Resolving]
  - Bacillus infection [Recovered/Resolved]
  - Bone marrow failure [Recovered/Resolved]

NARRATIVE: CASE EVENT DATE: 20140823
